FAERS Safety Report 9360634 (Version 2)
Quarter: 2013Q3

REPORT INFORMATION
  Report Type: Report from Study
  Country: JP (occurrence: JP)
  Receive Date: 20130621
  Receipt Date: 20130711
  Transmission Date: 20140515
  Serious: Yes (Hospitalization)
  Sender: FDA-Public Use
  Company Number: JP-NOVOPROD-380741

PATIENT
  Age: 62 Year
  Sex: Male
  Weight: 86 kg

DRUGS (10)
  1. LIRAGLUTIDE FLEXPEN [Suspect]
     Indication: TYPE 2 DIABETES MELLITUS
     Dosage: 0.3 MG, QD
     Route: 058
     Dates: start: 20120508
  2. LIRAGLUTIDE FLEXPEN [Suspect]
     Dosage: 0.6 MG, QD
     Route: 058
     Dates: start: 20120514
  3. LIRAGLUTIDE FLEXPEN [Suspect]
     Dosage: 0.9 MG, QD
     Route: 058
     Dates: start: 20120709
  4. UNISIA [Concomitant]
     Route: 048
  5. BAYASPIRIN [Concomitant]
     Route: 048
  6. GASMOTIN [Concomitant]
     Route: 048
  7. KINEDAK [Concomitant]
     Route: 048
  8. LIPITOR [Concomitant]
     Route: 048
  9. ZYLORIC [Concomitant]
     Route: 048
  10. LENDORMIN [Concomitant]
     Route: 048

REACTIONS (1)
  - Bladder cancer [Not Recovered/Not Resolved]
